FAERS Safety Report 9286530 (Version 2)
Quarter: 2013Q3

REPORT INFORMATION
  Report Type: Spontaneous
  Country: NO (occurrence: NO)
  Receive Date: 20130513
  Receipt Date: 20130718
  Transmission Date: 20140515
  Serious: Yes (Death, Other)
  Sender: FDA-Public Use
  Company Number: NO-ELI_LILLY_AND_COMPANY-NO201305002293

PATIENT
  Age: 64 Year
  Sex: Female

DRUGS (2)
  1. GEMZAR [Suspect]
     Indication: PANCREATIC CARCINOMA
     Dosage: 1000 MG, UNK
     Route: 042
     Dates: start: 20100916, end: 20110407
  2. VENTOLIN                                /SCH/ [Concomitant]
     Dosage: UNK, PRN
     Route: 055

REACTIONS (8)
  - Capillary leak syndrome [Fatal]
  - Left ventricular failure [Unknown]
  - Pulmonary hypertension [Unknown]
  - Acidosis [Not Recovered/Not Resolved]
  - Pleural effusion [Not Recovered/Not Resolved]
  - Renal failure [Not Recovered/Not Resolved]
  - Cardiac failure [Not Recovered/Not Resolved]
  - Oedema [Not Recovered/Not Resolved]
